FAERS Safety Report 12920369 (Version 1)
Quarter: 2016Q4

REPORT INFORMATION
  Report Type: Spontaneous
  Country: US (occurrence: US)
  Receive Date: 20161108
  Receipt Date: 20161108
  Transmission Date: 20170207
  Serious: Yes (Hospitalization)
  Sender: FDA-Public Use
  Company Number: US-BIOGEN-2016BI00313649

PATIENT
  Age: 46 Year
  Sex: Male

DRUGS (1)
  1. TECFIDERA [Suspect]
     Active Substance: DIMETHYL FUMARATE
     Indication: MULTIPLE SCLEROSIS
     Route: 065

REACTIONS (9)
  - Bradycardia [Recovered/Resolved]
  - Fatigue [Unknown]
  - Multiple sclerosis [Unknown]
  - Malaise [Unknown]
  - Hypothalamo-pituitary disorder [Unknown]
  - Hypotension [Recovered/Resolved]
  - Asthenia [Unknown]
  - Hypothermia [Recovered/Resolved]
  - Adrenal insufficiency [Unknown]
